FAERS Safety Report 4802440-5 (Version None)
Quarter: 2005Q4

REPORT INFORMATION
  Report Type: 
  Country: None (occurrence: None)
  Receive Date: 20051018
  Receipt Date: 20030918
  Transmission Date: 20060501
  Serious: Yes (Hospitalization)
  Sender: FDA-Public Use
  Company Number: GB-AMGEN-UK045757

PATIENT
  Age: 52 Year
  Sex: Male
  Weight: 70 kg

DRUGS (14)
  1. NEULASTA [Suspect]
     Indication: CHEMOTHERAPY
     Route: 058
     Dates: start: 20030429, end: 20030704
  2. RITUXIMAB [Suspect]
     Route: 042
     Dates: start: 20030401
  3. VINCRISTINE [Suspect]
     Route: 042
     Dates: start: 20030401
  4. CYCLOPHOSPHAMIDE [Concomitant]
     Route: 042
     Dates: start: 20030401
  5. DOXORUBICIN HYDROCHLORIDE [Concomitant]
     Route: 042
     Dates: start: 20030401
  6. PREDNISOLONE [Concomitant]
     Dates: start: 20030401
  7. CARBAMAZEPINE [Concomitant]
     Route: 065
  8. OMEPRAZOLE [Concomitant]
     Route: 065
  9. PRAVASTATIN [Concomitant]
     Route: 065
  10. METOPROLOL [Concomitant]
     Route: 065
  11. FRUSEMIDE [Concomitant]
     Route: 065
  12. SPIRONOLACTONE [Concomitant]
     Route: 065
  13. WARFARIN SODIUM [Concomitant]
     Route: 065
  14. THYROXINE [Concomitant]
     Route: 065

REACTIONS (1)
  - CRYPTOGENIC ORGANIZING PNEUMONIA [None]
